FAERS Safety Report 18180587 (Version 1)
Quarter: 2020Q3

REPORT INFORMATION
  Report Type: Spontaneous
  Country: IT (occurrence: IT)
  Receive Date: 20200821
  Receipt Date: 20200821
  Transmission Date: 20201103
  Serious: Yes (Other)
  Sender: FDA-Public Use
  Company Number: IT-ACTELION-A-CH2020-208550

PATIENT
  Sex: Female
  Weight: 42.6 kg

DRUGS (3)
  1. ZAVESCA [Suspect]
     Active Substance: MIGLUSTAT
     Dosage: 200 MG, TID
     Route: 048
  2. LAMOTRIGINE. [Concomitant]
     Active Substance: LAMOTRIGINE
  3. ZAVESCA [Suspect]
     Active Substance: MIGLUSTAT
     Indication: GALACTOSIALIDOSIS
     Dosage: 100 MG, TID
     Route: 048

REACTIONS (6)
  - Bone hypertrophy [Unknown]
  - Diarrhoea [Recovering/Resolving]
  - Abdominal pain [Recovering/Resolving]
  - Concomitant disease progression [Unknown]
  - Cerebral atrophy [Unknown]
  - Weight decreased [Recovering/Resolving]
